FAERS Safety Report 8305874-X (Version None)
Quarter: 2012Q2

REPORT INFORMATION
  Report Type: 
  Country: None (occurrence: None)
  Receive Date: 20120418
  Receipt Date: 20120403
  Transmission Date: 20120825
  Serious: Yes (Other)
  Sender: FDA-Public Use
  Company Number: 2012-00598

PATIENT
  Age: 73 Year
  Sex: Female

DRUGS (3)
  1. FUSIDIC ACID [Concomitant]
  2. RAMIPRIL [Concomitant]
  3. SIMVASTATIN [Suspect]
     Indication: PRODUCT USED FOR UNKNOWN INDICATION
     Dosage: UNKNOWN (UNKNOWN, UNK), UNKNOWN
     Dates: start: 20120315

REACTIONS (2)
  - MYALGIA [None]
  - PAIN IN EXTREMITY [None]
